FAERS Safety Report 10015385 (Version 1)
Quarter: 2014Q1

REPORT INFORMATION
  Report Type: Spontaneous
  Country: US (occurrence: US)
  Receive Date: 20140317
  Receipt Date: 20140317
  Transmission Date: 20141002
  Serious: No
  Sender: FDA-Public Use
  Company Number: US-PFIZER INC-2014076616

PATIENT
  Age: 75 Year
  Sex: Female
  Weight: 68.03 kg

DRUGS (9)
  1. GABAPENTIN [Suspect]
     Indication: TRIGEMINAL NEURALGIA
     Dosage: 300 MG, 3X/DAY
  2. GABAPENTIN [Suspect]
     Dosage: 100 MG, 3X/DAY
  3. GABAPENTIN [Suspect]
     Dosage: 300 MG, 3X/DAY
  4. NORVASC [Concomitant]
     Indication: HYPERTENSION
     Dosage: 5 MG, DAILY
  5. LIPITOR [Concomitant]
     Indication: BLOOD CHOLESTEROL INCREASED
     Dosage: 20 MG, DAILY
  6. ZOLOFT [Concomitant]
     Indication: DEPRESSION
     Dosage: 100 MG, DAILY
  7. AMBIEN [Concomitant]
     Indication: INSOMNIA
     Dosage: 10 MG, DAILY
  8. TRAZODONE [Concomitant]
     Indication: DEPRESSION
     Dosage: 100 MG, DAILY
  9. TRAZODONE [Concomitant]
     Indication: INSOMNIA

REACTIONS (1)
  - Visual impairment [Unknown]
